FAERS Safety Report 13112539 (Version 5)
Quarter: 2017Q3

REPORT INFORMATION
  Report Type: Report from Study
  Country: KR (occurrence: KR)
  Receive Date: 20170113
  Receipt Date: 20170731
  Transmission Date: 20171127
  Serious: Yes (Hospitalization)
  Sender: FDA-Public Use
  Company Number: KR-ROCHE-1877845

PATIENT
  Age: 54 Year
  Sex: Male
  Weight: 85 kg

DRUGS (18)
  1. STOGAR [Concomitant]
     Active Substance: LAFUTIDINE
     Indication: GASTRITIS
     Route: 048
     Dates: start: 20170103, end: 20170117
  2. MUPIROCIN. [Concomitant]
     Active Substance: MUPIROCIN
     Indication: DERMATITIS ACNEIFORM
     Route: 062
     Dates: start: 20170113, end: 20170220
  3. CODAEWON FORTE [Concomitant]
     Indication: COUGH
     Route: 048
     Dates: start: 20170109, end: 20170125
  4. ATIVAN [Concomitant]
     Active Substance: LORAZEPAM
     Indication: NAUSEA
     Route: 042
     Dates: start: 20170111, end: 20170111
  5. PERIDOL (SOUTH KOREA) [Concomitant]
     Indication: DELIRIUM
     Route: 048
     Dates: start: 20170112, end: 20170116
  6. PENIRAMIN [Concomitant]
     Indication: PRURITUS
     Route: 042
     Dates: start: 20170113, end: 20170113
  7. OLOPAT [Concomitant]
     Indication: RASH
     Route: 048
     Dates: start: 20170103, end: 20170124
  8. VIMOVO [Concomitant]
     Active Substance: ESOMEPRAZOLE MAGNESIUM\NAPROXEN
     Indication: CHILLS
     Dosage: 50/20MG
     Route: 048
     Dates: start: 20170103, end: 20170107
  9. LACTICARE HC [Concomitant]
     Indication: RASH
     Route: 062
     Dates: start: 20170103, end: 20170113
  10. HARNAL [Concomitant]
     Active Substance: TAMSULOSIN HYDROCHLORIDE
     Indication: DYSURIA
     Route: 065
     Dates: start: 20170113, end: 20170125
  11. URSA [Concomitant]
     Indication: ASPARTATE AMINOTRANSFERASE INCREASED
     Route: 048
     Dates: start: 20170105, end: 20170118
  12. ATEZOLIZUMAB. [Suspect]
     Active Substance: ATEZOLIZUMAB
     Indication: COLORECTAL ADENOCARCINOMA
     Dosage: MOST RECENT DOSE OF STUDY DRUG PRIOR TO AE ONSET 05/JAN/2017
     Route: 042
     Dates: start: 20161220
  13. FLOMOX (SOUTH KOREA) [Concomitant]
     Indication: SINUSITIS
     Route: 048
     Dates: start: 20170105, end: 20170111
  14. COBIMETINIB. [Suspect]
     Active Substance: COBIMETINIB
     Indication: COLORECTAL ADENOCARCINOMA
     Dosage: 60 MG ORALLY ON DAYS 1 TO 21 IN A 28-DAY CYCLE UNTIL DISEASE PROGRESSION (AS PER PROTOCOL)?MOST RECE
     Route: 048
     Dates: start: 20161220
  15. DOXYCYCLINE. [Concomitant]
     Active Substance: DOXYCYCLINE
     Indication: RASH
     Route: 048
     Dates: start: 20170103, end: 20170113
  16. DUAC [Concomitant]
     Active Substance: BENZOYL PEROXIDE\CLINDAMYCIN PHOSPHATE
     Indication: RASH
     Route: 062
     Dates: start: 20170103, end: 20170113
  17. BANDEL [Concomitant]
     Indication: DERMATITIS ACNEIFORM
     Route: 062
     Dates: start: 20170113, end: 20170220
  18. PROSOL LOTION (SOUTH KOREA) [Concomitant]
     Indication: DERMATITIS ACNEIFORM
     Route: 062
     Dates: start: 20170113

REACTIONS (2)
  - Blood creatine phosphokinase increased [Recovered/Resolved]
  - Oral candidiasis [Recovered/Resolved]

NARRATIVE: CASE EVENT DATE: 20170109
